FAERS Safety Report 7390213 (Version 2)
Quarter: 2014Q2

REPORT INFORMATION
  Report Type: Spontaneous
  Country: US (occurrence: US)
  Receive Date: 20100517
  Receipt Date: 20140616
  Transmission Date: 20141212
  Serious: Yes (Hospitalization)
  Sender: FDA-Public Use
  Company Number: US-ELI_LILLY_AND_COMPANY-US201005002059

PATIENT
  Age: 47 Year
  Sex: Female

DRUGS (15)
  1. CYMBALTA [Suspect]
     Indication: DIABETIC NEUROPATHY
     Dosage: 60 MG, DAILY (1/D)
     Route: 048
     Dates: start: 201002
  2. CYMBALTA [Suspect]
     Indication: FIBROMYALGIA
  3. DULOXETINE HYDROCHLORIDE [Suspect]
     Indication: DIABETIC NEUROPATHY
     Dosage: 60 MG, UNKNOWN
     Route: 065
  4. DULOXETINE HYDROCHLORIDE [Suspect]
     Indication: FIBROMYALGIA
  5. HUMALOG LISPRO [Suspect]
     Indication: DIABETES MELLITUS
     Dosage: 1.75 D/F, UNK
     Route: 058
  6. HUMALOG LISPRO [Suspect]
     Dosage: 1.3 D/F, UNK
     Route: 058
  7. LASIX [Concomitant]
     Dosage: 20 MG, DAILY (1/D)
  8. SYNTHROID [Concomitant]
     Dosage: 0.88 UG, DAILY (1/D)
  9. LISINOPRIL [Concomitant]
     Dosage: 40 MG, DAILY (1/D)
  10. ATENOLOL [Concomitant]
     Dosage: 100 MG, DAILY (1/D)
  11. VICODIN ES [Concomitant]
     Dosage: 1 D/F, 2/D
  12. FLEXERIL [Concomitant]
     Dosage: 10 MG, 2/D
  13. XANAX [Concomitant]
     Dosage: 0.5 MG, EACH EVENING
  14. BABY ASPIRIN [Concomitant]
     Dosage: 1 D/F, DAILY (1/D)
  15. MOTRIN [Concomitant]
     Dosage: 600 D/F, AS NEEDED

REACTIONS (6)
  - Hysterectomy [Recovering/Resolving]
  - Haemorrhage [Unknown]
  - Thirst [Unknown]
  - Skin discolouration [Unknown]
  - Blood glucose decreased [Unknown]
  - Drug ineffective [Unknown]
